FAERS Safety Report 11253768 (Version 1)
Quarter: 2015Q3

REPORT INFORMATION
  Report Type: Spontaneous
  Country: CN (occurrence: CN)
  Receive Date: 20150709
  Receipt Date: 20150709
  Transmission Date: 20151125
  Serious: Yes (Hospitalization)
  Sender: FDA-Public Use
  Company Number: CN-ROCHE-1605443

PATIENT
  Age: 42 Year
  Sex: Male
  Weight: 63 kg

DRUGS (2)
  1. ROCEPHIN [Suspect]
     Active Substance: CEFTRIAXONE SODIUM
     Indication: CENTRAL NERVOUS SYSTEM INFECTION
     Route: 041
     Dates: start: 20141220, end: 20150103
  2. CHLORAMPHENICOL [Suspect]
     Active Substance: CHLORAMPHENICOL
     Indication: CENTRAL NERVOUS SYSTEM INFECTION
     Route: 041
     Dates: start: 20141220, end: 20141229

REACTIONS (2)
  - Full blood count decreased [Recovering/Resolving]
  - Contusion [Unknown]

NARRATIVE: CASE EVENT DATE: 20141231
